FAERS Safety Report 9101992 (Version 1)
Quarter: 2013Q1

REPORT INFORMATION
  Report Type: Report from Study
  Country: US (occurrence: US)
  Receive Date: 20130218
  Receipt Date: 20130218
  Transmission Date: 20140127
  Serious: Yes (Life-Threatening)
  Sender: FDA-Public Use
  Company Number: US-MERCK-1302USA007545

PATIENT
  Age: 45 Year
  Sex: Male
  Weight: 75.8 kg

DRUGS (2)
  1. VORINOSTAT [Suspect]
     Indication: DIFFUSE LARGE B-CELL LYMPHOMA
     Dosage: 200 MG, BID ON DAYS 1-14
     Route: 048
     Dates: start: 20130131
  2. MLN8237 [Suspect]
     Indication: DIFFUSE LARGE B-CELL LYMPHOMA
     Dosage: 40 MG, BID ON DAYS 1-7
     Route: 048
     Dates: start: 20130131

REACTIONS (1)
  - Neutrophil count decreased [Recovered/Resolved]
